FAERS Safety Report 7266377-7 (Version None)
Quarter: 2011Q1

REPORT INFORMATION
  Report Type: 
  Country: None (occurrence: None)
  Receive Date: 20110131
  Receipt Date: 20110118
  Transmission Date: 20110831
  Serious: Yes (Hospitalization)
  Sender: FDA-Public Use
  Company Number: US-ACTELION-A-US2011-44162

PATIENT

DRUGS (9)
  1. REVATIO [Concomitant]
  2. ARIXTRA [Concomitant]
  3. BOSENTAN TABLET UNKNOWN US MG [Suspect]
     Indication: PULMONARY ARTERIAL HYPERTENSION
     Dosage: UNK MG, UNK
     Route: 048
     Dates: start: 20020901
  4. PROZAC [Concomitant]
  5. COUMADIN [Concomitant]
  6. OXYGEN [Concomitant]
  7. POTASSIUM [Concomitant]
  8. DILAUDID [Concomitant]
  9. PRILOSEC [Concomitant]

REACTIONS (8)
  - TROPONIN INCREASED [None]
  - PAIN [None]
  - CHEST PAIN [None]
  - BACK PAIN [None]
  - HYPERTENSION [None]
  - DYSPNOEA [None]
  - ANXIETY [None]
  - SINUS TACHYCARDIA [None]
